FAERS Safety Report 21693590 (Version 3)
Quarter: 2023Q1

REPORT INFORMATION
  Report Type: Spontaneous
  Country: CA (occurrence: None)
  Receive Date: 20221207
  Receipt Date: 20230110
  Transmission Date: 20230417
  Serious: Yes (Hospitalization)
  Sender: FDA-Public Use
  Company Number: CA-Ultragenyx Pharmaceutical Inc.-CA-UGNX-22-00898

PATIENT
  Sex: Male
  Weight: 6.58 kg

DRUGS (9)
  1. DOJOLVI [Suspect]
     Active Substance: TRIHEPTANOIN
     Indication: Very long-chain acyl-coenzyme A dehydrogenase deficiency
     Dosage: 3.8G/K (30% DCI)
     Route: 048
  2. DOJOLVI [Suspect]
     Active Substance: TRIHEPTANOIN
     Dosage: 3.68 G/K
     Route: 048
  3. DOJOLVI [Suspect]
     Active Substance: TRIHEPTANOIN
     Dosage: 3.1 G/K (21% DCI)
     Route: 048
  4. DOJOLVI [Suspect]
     Active Substance: TRIHEPTANOIN
     Dosage: LOWERING THE DOSE SINCE ADMISSION TO THE HOSPITAL
     Route: 048
  5. DOJOLVI [Suspect]
     Active Substance: TRIHEPTANOIN
     Dosage: 3ML SIX TIMES AND 2ML TWO TIMES A DAY
     Route: 048
  6. DOJOLVI [Suspect]
     Active Substance: TRIHEPTANOIN
     Dosage: 2,3ML EVERY THREE HOURS
     Route: 048
  7. DOJOLVI [Suspect]
     Active Substance: TRIHEPTANOIN
     Route: 048
     Dates: start: 20220818
  8. FERROUS SULFATE [Concomitant]
     Active Substance: FERROUS SULFATE
     Indication: Product used for unknown indication
  9. VITAMIN D [Concomitant]
     Active Substance: VITAMIN D NOS
     Indication: Product used for unknown indication

REACTIONS (11)
  - Respiratory syncytial virus bronchiolitis [Recovering/Resolving]
  - Acute respiratory distress syndrome [Recovering/Resolving]
  - Pneumonia bacterial [Unknown]
  - Pericardial effusion [Unknown]
  - Tachycardia [Unknown]
  - Deep vein thrombosis [Unknown]
  - Withdrawal syndrome [Unknown]
  - Carnitine increased [Unknown]
  - Steatorrhoea [Unknown]
  - Abdominal distension [Unknown]
  - Diarrhoea [Unknown]

NARRATIVE: CASE EVENT DATE: 20220101
